FAERS Safety Report 9670199 (Version 1)
Quarter: 2013Q4

REPORT INFORMATION
  Report Type: Spontaneous
  Country: US (occurrence: None)
  Receive Date: 20131104
  Receipt Date: 20131104
  Transmission Date: 20140711
  Serious: Yes (Other)
  Sender: FDA-Public Use
  Company Number: AUR-PAL-2013-09136

PATIENT
  Age: 61 Year
  Sex: Male
  Weight: 95.24 kg

DRUGS (3)
  1. RAMIPRIL [Suspect]
     Indication: HYPERTENSION
     Route: 048
     Dates: end: 2006
  2. ALTACE [Suspect]
     Indication: HYPERTENSION
     Route: 048
     Dates: end: 2006
  3. ASPIRIN [Suspect]
     Indication: HYPERTENSION

REACTIONS (14)
  - Feeling abnormal [None]
  - Decreased activity [None]
  - Micturition disorder [None]
  - Urinary retention [None]
  - Fluid retention [None]
  - Blood pressure increased [None]
  - Expired drug administered [None]
  - Treatment noncompliance [None]
  - Nervousness [None]
  - Inappropriate schedule of drug administration [None]
  - Economic problem [None]
  - Drug ineffective [None]
  - Therapeutic response unexpected [None]
  - Pre-existing condition improved [None]
